FAERS Safety Report 4331236-6 (Version None)
Quarter: 2004Q2

REPORT INFORMATION
  Report Type: 
  Country: None (occurrence: None)
  Receive Date: 20040405
  Receipt Date: 20040330
  Transmission Date: 20050107
  Serious: Yes (Life-Threatening)
  Sender: FDA-Public Use
  Company Number: 200413704GDDC

PATIENT
  Age: 53 Year
  Sex: Female

DRUGS (2)
  1. AMARYL [Suspect]
     Route: 048
  2. METFORMIN HCL [Concomitant]

REACTIONS (1)
  - RETINAL HAEMORRHAGE [None]
